FAERS Safety Report 23773236 (Version 4)
Quarter: 2025Q1

REPORT INFORMATION
  Report Type: Spontaneous
  Country: CA (occurrence: CA)
  Receive Date: 20240423
  Receipt Date: 20250120
  Transmission Date: 20250409
  Serious: Yes (Other)
  Sender: PFIZER
  Company Number: CA-PFIZER INC-202400091249

PATIENT
  Age: 69 Year
  Sex: Female

DRUGS (18)
  1. RUXIENCE [Suspect]
     Active Substance: RITUXIMAB-PVVR
     Indication: Rheumatoid arthritis
     Route: 042
     Dates: start: 20230307, end: 20230321
  2. RUXIENCE [Suspect]
     Active Substance: RITUXIMAB-PVVR
     Route: 042
     Dates: start: 20231016, end: 20231030
  3. RUXIENCE [Suspect]
     Active Substance: RITUXIMAB-PVVR
     Route: 042
     Dates: start: 20231030
  4. RUXIENCE [Suspect]
     Active Substance: RITUXIMAB-PVVR
     Route: 042
     Dates: start: 20240510
  5. RUXIENCE [Suspect]
     Active Substance: RITUXIMAB-PVVR
     Route: 042
     Dates: start: 20240523
  6. RUXIENCE [Suspect]
     Active Substance: RITUXIMAB-PVVR
     Route: 042
     Dates: start: 20241231
  7. RUXIENCE [Suspect]
     Active Substance: RITUXIMAB-PVVR
     Route: 042
     Dates: start: 20250114
  8. ACETAMINOPHEN [Concomitant]
     Active Substance: ACETAMINOPHEN
     Indication: Premedication
     Route: 048
     Dates: start: 20240510, end: 20240510
  9. ACETAMINOPHEN [Concomitant]
     Active Substance: ACETAMINOPHEN
     Dates: start: 20241231, end: 20241231
  10. AMLODIPINE BESYLATE [Concomitant]
     Active Substance: AMLODIPINE BESYLATE
     Dosage: 5 MG, 1X/DAY
     Route: 048
     Dates: start: 202402
  11. DIPHENHYDRAMINE [Concomitant]
     Active Substance: DIPHENHYDRAMINE
     Indication: Premedication
     Route: 048
     Dates: start: 20240510, end: 20240510
  12. DIPHENHYDRAMINE [Concomitant]
     Active Substance: DIPHENHYDRAMINE
     Dates: start: 20241231, end: 20241231
  13. ENALAPRIL [Concomitant]
     Active Substance: ENALAPRIL
     Dosage: 10 MG, 2X/DAY
     Route: 048
  14. METHYLPREDNISOLONE [Concomitant]
     Active Substance: METHYLPREDNISOLONE
     Indication: Premedication
     Route: 042
     Dates: start: 20240510, end: 20240510
  15. METHYLPREDNISOLONE [Concomitant]
     Active Substance: METHYLPREDNISOLONE
     Route: 042
     Dates: start: 20241231, end: 20241231
  16. PREDNISONE [Concomitant]
     Active Substance: PREDNISONE
  17. SULFASALAZINE [Concomitant]
     Active Substance: SULFASALAZINE
     Dates: start: 2019
  18. TYLENOL WITH CODEINE [Concomitant]
     Active Substance: ACETAMINOPHEN\CODEINE PHOSPHATE

REACTIONS (4)
  - Hip arthroplasty [Recovered/Resolved]
  - Blood pressure systolic increased [Recovering/Resolving]
  - Blood pressure increased [Recovered/Resolved]
  - Heart rate abnormal [Unknown]

NARRATIVE: CASE EVENT DATE: 20240228
